FAERS Safety Report 21450682 (Version 2)
Quarter: 2022Q4

REPORT INFORMATION
  Report Type: Spontaneous
  Country: US (occurrence: US)
  Receive Date: 20221013
  Receipt Date: 20221108
  Transmission Date: 20230112
  Serious: Yes (Other)
  Sender: FDA-Public Use
  Company Number: US-BAYER-2022A139790

PATIENT
  Age: 34 Year
  Sex: Male

DRUGS (3)
  1. KOVALTRY [Suspect]
     Active Substance: ANTIHEMOPHILIC FACTOR, HUMAN RECOMBINANT
     Dosage: UNK (4000U +/- 10%)
  2. KOVALTRY [Suspect]
     Active Substance: ANTIHEMOPHILIC FACTOR, HUMAN RECOMBINANT
     Dosage: 2 DF, ONCE (TO RESOLVE BLEED)
     Dates: start: 20220929, end: 20220929
  3. KOVALTRY [Suspect]
     Active Substance: ANTIHEMOPHILIC FACTOR, HUMAN RECOMBINANT
     Dosage: 2 DF, ONCE FOR LEFT KNEE BLEED

REACTIONS (3)
  - Haemarthrosis [None]
  - Haemarthrosis [Recovered/Resolved]
  - Fall [None]

NARRATIVE: CASE EVENT DATE: 20220929
